FAERS Safety Report 8990797 (Version 1)
Quarter: 2012Q4

REPORT INFORMATION
  Report Type: Spontaneous
  Country: US (occurrence: None)
  Receive Date: 20121226
  Receipt Date: 20121226
  Transmission Date: 20130627
  Serious: Yes (Hospitalization)
  Sender: FDA-Public Use
  Company Number: None

PATIENT
  Age: 72 Year
  Sex: Female
  Weight: 100.25 kg

DRUGS (2)
  1. OFIRMEV 1000MG/100ML CADENCE [Suspect]
     Indication: PAIN MANAGEMENT
     Dosage: 1000 mg q6h IV
     Route: 042
     Dates: start: 20121217, end: 20121219
  2. OFIRMEV 1000MG/100ML CADENCE [Suspect]
     Indication: POSTOPERATIVE PAIN
     Dosage: 1000 mg q6h IV
     Route: 042
     Dates: start: 20121217, end: 20121219

REACTIONS (2)
  - Oesophageal pain [None]
  - Infusion related reaction [None]
